FAERS Safety Report 19283876 (Version 3)
Quarter: 2021Q3

REPORT INFORMATION
  Report Type: Spontaneous
  Country: US (occurrence: US)
  Receive Date: 20210521
  Receipt Date: 20210927
  Transmission Date: 20211014
  Serious: Yes (Other)
  Sender: FDA-Public Use
  Company Number: US-PFIZER INC-2021527300

PATIENT
  Age: 72 Year
  Sex: Female

DRUGS (2)
  1. XELJANZ XR [Suspect]
     Active Substance: TOFACITINIB CITRATE
     Indication: RHEUMATOID ARTHRITIS
     Dosage: 11 MG, DAILY
     Route: 048
     Dates: start: 2020
  2. XELJANZ XR [Suspect]
     Active Substance: TOFACITINIB CITRATE
     Dosage: 30 MG, 1X/DAY
     Route: 048
     Dates: start: 202012, end: 202108

REACTIONS (6)
  - Alopecia [Not Recovered/Not Resolved]
  - Sciatica [Not Recovered/Not Resolved]
  - Cataract [Unknown]
  - Blood cholesterol increased [Not Recovered/Not Resolved]
  - Pain [Unknown]
  - Joint effusion [Unknown]

NARRATIVE: CASE EVENT DATE: 2021
